FAERS Safety Report 5516119-8 (Version None)
Quarter: 2007Q4

REPORT INFORMATION
  Report Type: 
  Country: None (occurrence: None)
  Receive Date: 20071114
  Receipt Date: 20061218
  Transmission Date: 20080405
  Serious: No
  Sender: FDA-Public Use
  Company Number: A0631708A

PATIENT
  Age: 61 Year
  Sex: Female

DRUGS (2)
  1. COMMIT [Suspect]
     Dates: start: 20061212
  2. NICORETTE [Suspect]

REACTIONS (4)
  - EXPIRED DRUG ADMINISTERED [None]
  - NAUSEA [None]
  - NERVOUSNESS [None]
  - NICOTINE DEPENDENCE [None]
